FAERS Safety Report 18936699 (Version 1)
Quarter: 2021Q1

REPORT INFORMATION
  Report Type: Spontaneous
  Country: US (occurrence: US)
  Receive Date: 20210224
  Receipt Date: 20210224
  Transmission Date: 20210420
  Serious: Yes (Other)
  Sender: FDA-Public Use
  Company Number: US-SEPTODONT-2021006135

PATIENT
  Age: 49 Year
  Sex: Male

DRUGS (1)
  1. SEPTOCAINE [Suspect]
     Active Substance: ARTICAINE HYDROCHLORIDE\EPINEPHRINE BITARTRATE
     Indication: ARTIFICIAL CROWN PROCEDURE
     Dosage: TWO CARTRIDGES AND DELIVERY AT A RATE OF ? ?CARPULE? EVERY 1 ? 1? HOURS APP.
     Route: 004

REACTIONS (5)
  - Cellulitis [Unknown]
  - Lip swelling [Unknown]
  - Injection site swelling [Unknown]
  - Hypoaesthesia [Unknown]
  - Swelling [Unknown]

NARRATIVE: CASE EVENT DATE: 20210210
